FAERS Safety Report 5852756-9 (Version None)
Quarter: 2008Q3

REPORT INFORMATION
  Report Type: 
  Country: None (occurrence: None)
  Receive Date: 20080821
  Receipt Date: 20080808
  Transmission Date: 20090109
  Serious: Yes (Other)
  Sender: FDA-Public Use
  Company Number: US-JNJFOC-20080605425

PATIENT
  Sex: Male
  Weight: 100.25 kg

DRUGS (8)
  1. RISPERDAL CONSTA [Suspect]
     Route: 030
  2. RISPERDAL CONSTA [Suspect]
     Indication: SCHIZOPHRENIA
     Dosage: THE START DATE IS JUNE 2008.
     Route: 030
  3. NORVASC [Suspect]
     Indication: HYPERTENSION
     Route: 065
  4. ISOSORBIDE [Suspect]
     Indication: HYPERTENSION
     Route: 065
  5. DIOVAN [Suspect]
     Indication: HYPERTENSION
     Route: 065
  6. HYDROCHLOROTHIAZIDE [Suspect]
     Indication: HYPERTENSION
     Route: 065
  7. CATAPRES-TTS-1 [Suspect]
     Indication: HYPERTENSION
     Route: 065
  8. ESKALITH [Concomitant]
     Indication: DRUG THERAPY
     Dosage: 450MG/ NIGHT
     Route: 065

REACTIONS (4)
  - BLOOD PRESSURE DECREASED [None]
  - BRADYCARDIA [None]
  - RESPIRATORY RATE DECREASED [None]
  - SYNCOPE [None]
